FAERS Safety Report 7470117-6 (Version None)
Quarter: 2011Q2

REPORT INFORMATION
  Report Type: 
  Country: None (occurrence: None)
  Receive Date: 20110510
  Receipt Date: 20110503
  Transmission Date: 20111010
  Serious: Yes (Hospitalization)
  Sender: FDA-Public Use
  Company Number: A0900645A

PATIENT
  Age: 54 Year
  Sex: Female

DRUGS (1)
  1. AVANDAMET [Suspect]
     Indication: DIABETES MELLITUS
     Route: 048
     Dates: start: 20050101, end: 20070601

REACTIONS (3)
  - CORONARY ARTERY DISEASE [None]
  - ANGINA UNSTABLE [None]
  - ACUTE MYOCARDIAL INFARCTION [None]
